FAERS Safety Report 4564244-0 (Version None)
Quarter: 2005Q1

REPORT INFORMATION
  Report Type: 
  Country: None (occurrence: None)
  Receive Date: 20050128
  Receipt Date: 20040128
  Transmission Date: 20050727
  Serious: Yes (Hospitalization)
  Sender: FDA-Public Use
  Company Number: US-GLAXOSMITHKLINE-A0495347A

PATIENT
  Age: 50 Year
  Sex: Male

DRUGS (9)
  1. COMBIVIR [Suspect]
     Indication: HIV INFECTION
     Dosage: 300MG TWICE PER DAY
     Route: 048
     Dates: start: 19980416
  2. TYLENOL W/ CODEINE NO. 4 [Concomitant]
  3. TRAZODONE HCL [Concomitant]
  4. VALIUM [Concomitant]
  5. ASPIRIN [Concomitant]
  6. TERBINAFINE HCL [Concomitant]
  7. ALBUTEROL [Concomitant]
  8. NITROGLYCERIN [Concomitant]
  9. NEVIRAPINE [Concomitant]

REACTIONS (1)
  - HEADACHE [None]
